FAERS Safety Report 11573356 (Version 1)
Quarter: 2015Q3

REPORT INFORMATION
  Report Type: Spontaneous
  Country: US (occurrence: US)
  Receive Date: 20150929
  Receipt Date: 20150929
  Transmission Date: 20151125
  Serious: Yes (Other)
  Sender: FDA-Public Use
  Company Number: US-CELGENEUS-USA-2015094085

PATIENT
  Sex: Female

DRUGS (1)
  1. THALOMID [Suspect]
     Active Substance: THALIDOMIDE
     Indication: ANGIODYSPLASIA
     Dosage: 50 MILLIGRAM
     Route: 048
     Dates: start: 201410

REACTIONS (1)
  - Hypoaesthesia [Unknown]
